FAERS Safety Report 24075995 (Version 1)
Quarter: 2024Q3

REPORT INFORMATION
  Report Type: Spontaneous
  Country: US (occurrence: US)
  Receive Date: 20240710
  Receipt Date: 20240710
  Transmission Date: 20241017
  Serious: No
  Sender: APELLIS PHARMACEUTICALS
  Company Number: US-APELLIS-2024-APL-0000376

PATIENT

DRUGS (2)
  1. SYFOVRE [Suspect]
     Active Substance: PEGCETACOPLAN
     Indication: Product used for unknown indication
     Dosage: BILATERAL INJECTIONS
     Dates: start: 20240618
  2. SYFOVRE [Suspect]
     Active Substance: PEGCETACOPLAN

REACTIONS (4)
  - Eye haemorrhage [Unknown]
  - Visual impairment [Unknown]
  - Eyelid margin crusting [Unknown]
  - Discomfort [Unknown]

NARRATIVE: CASE EVENT DATE: 20240618
